FAERS Safety Report 21437926 (Version 1)
Quarter: 2022Q4

REPORT INFORMATION
  Report Type: Spontaneous
  Country: DE (occurrence: DE)
  Receive Date: 20221011
  Receipt Date: 20221011
  Transmission Date: 20230112
  Serious: Yes (Death, Other)
  Sender: FDA-Public Use
  Company Number: DE-AUROBINDO-AUR-APL-2022-038755

PATIENT
  Age: 61 Year
  Sex: Female

DRUGS (9)
  1. MEROPENEM [Suspect]
     Active Substance: MEROPENEM
     Indication: Waterhouse-Friderichsen syndrome
     Dosage: 2 GRAM, FOUR TIMES/DAY
     Route: 042
  2. CEFTRIAXONE [Suspect]
     Active Substance: CEFTRIAXONE
     Indication: Waterhouse-Friderichsen syndrome
     Route: 065
  3. AMPICILLIN [Suspect]
     Active Substance: AMPICILLIN
     Indication: Waterhouse-Friderichsen syndrome
     Dosage: 3 GRAM, FOUR TIMES/DAY
     Route: 065
  4. AMPICILLIN [Suspect]
     Active Substance: AMPICILLIN
     Dosage: UNK
     Route: 065
  5. CLINDAMYCIN [Suspect]
     Active Substance: CLINDAMYCIN
     Indication: Waterhouse-Friderichsen syndrome
     Dosage: 900 MILLIGRAM, 3 TIMES A DAY
     Route: 065
  6. METHYLPREDNISOLONE [Suspect]
     Active Substance: METHYLPREDNISOLONE
     Indication: Waterhouse-Friderichsen syndrome
     Dosage: 500 MILLIGRAM, 3 TIMES A DAY
     Route: 065
  7. METHYLPREDNISOLONE [Suspect]
     Active Substance: METHYLPREDNISOLONE
     Dosage: 250 MILLIGRAM, TWO TIMES A DAY
     Route: 065
  8. METHYLPREDNISOLONE [Suspect]
     Active Substance: METHYLPREDNISOLONE
     Dosage: 250 MILLIGRAM, ONCE A DAY
     Route: 065
  9. METHYLPREDNISOLONE [Suspect]
     Active Substance: METHYLPREDNISOLONE
     Dosage: 125 MILLIGRAM
     Route: 065

REACTIONS (1)
  - Drug ineffective [Fatal]
